FAERS Safety Report 10364336 (Version 2)
Quarter: 2014Q3

REPORT INFORMATION
  Report Type: Spontaneous
  Country: US (occurrence: US)
  Receive Date: 20140806
  Receipt Date: 20140820
  Transmission Date: 20150326
  Serious: Yes (Other)
  Sender: FDA-Public Use
  Company Number: US-BRISTOL-MYERS SQUIBB COMPANY-21250725

PATIENT
  Age: 73 Year
  Sex: Female

DRUGS (2)
  1. CLOMIPRAMINE [Concomitant]
     Active Substance: CLOMIPRAMINE
  2. ABILIFY [Suspect]
     Active Substance: ARIPIPRAZOLE
     Indication: DEPRESSION
     Dosage: 10 MG:LOT#3A80491A;EXP DATE:FEB2015?15 MG:LOT#3875091A;EXP DATE:FEB2015

REACTIONS (2)
  - Amnesia [Unknown]
  - Tooth fracture [Unknown]
